FAERS Safety Report 23291289 (Version 1)
Quarter: 2023Q4

REPORT INFORMATION
  Report Type: Spontaneous
  Country: US (occurrence: US)
  Receive Date: 20231213
  Receipt Date: 20231213
  Transmission Date: 20240110
  Serious: No
  Sender: FDA-Public Use
  Company Number: US-BAUSCHBL-2023BNL012686

PATIENT
  Sex: Female

DRUGS (2)
  1. TIMOPTIC [Suspect]
     Active Substance: TIMOLOL MALEATE
     Indication: Glaucoma
     Dosage: PATIENT HAD BEEN USING THIS MEDICATION FOR OVER 20 YEARS
     Route: 047
     Dates: start: 2002
  2. TIMOPTIC [Suspect]
     Active Substance: TIMOLOL MALEATE
     Dosage: FEW DAYS BACK
     Route: 047
     Dates: start: 2023

REACTIONS (2)
  - Pain [Unknown]
  - Product quality issue [Unknown]

NARRATIVE: CASE EVENT DATE: 20230101
